FAERS Safety Report 13802008 (Version 1)
Quarter: 2017Q3

REPORT INFORMATION
  Report Type: Spontaneous
  Country: CN (occurrence: CN)
  Receive Date: 20170727
  Receipt Date: 20170727
  Transmission Date: 20171127
  Serious: Yes (Other)
  Sender: FDA-Public Use
  Company Number: CN-BAYER-2017-140959

PATIENT

DRUGS (1)
  1. IOPROMIDE [Suspect]
     Active Substance: IOPROMIDE
     Indication: ARTERIOGRAM CORONARY
     Dosage: UNK, ONCE
     Dates: start: 20150929, end: 20150929

REACTIONS (10)
  - Blood pressure immeasurable [None]
  - Palpitations [None]
  - Loss of consciousness [None]
  - Apallic syndrome [None]
  - Tic [None]
  - Nausea [None]
  - Erythema [None]
  - Hypersensitivity [None]
  - Foaming at mouth [None]
  - Discomfort [None]

NARRATIVE: CASE EVENT DATE: 20150929
